FAERS Safety Report 9231141 (Version 1)
Quarter: 2013Q2

REPORT INFORMATION
  Report Type: Spontaneous
  Country: ES (occurrence: ES)
  Receive Date: 20130415
  Receipt Date: 20130415
  Transmission Date: 20140414
  Serious: Yes (Hospitalization, Other)
  Sender: FDA-Public Use
  Company Number: PHHY2013ES034771

PATIENT
  Age: 74 Year
  Sex: Male

DRUGS (3)
  1. AMIODARONE [Suspect]
     Indication: ATRIAL FIBRILLATION
  2. ACENOCOUMAROL [Concomitant]
     Indication: ATRIAL FIBRILLATION
  3. DIURETICS [Concomitant]

REACTIONS (13)
  - Pulmonary alveolar haemorrhage [Recovered/Resolved]
  - Interstitial lung disease [Recovered/Resolved]
  - Respiratory failure [Recovered/Resolved]
  - Haemoptysis [Recovered/Resolved]
  - Dyspnoea [Recovering/Resolving]
  - Orthopnoea [Recovered/Resolved]
  - Malaise [Recovered/Resolved]
  - Rales [Recovered/Resolved]
  - Pulmonary oedema [Recovered/Resolved]
  - Pallor [Unknown]
  - Anaemia [Recovered/Resolved]
  - Trepopnoea [Recovered/Resolved]
  - Hypocoagulable state [Recovered/Resolved]
